FAERS Safety Report 8217606-4 (Version None)
Quarter: 2012Q1

REPORT INFORMATION
  Report Type: 
  Country: None (occurrence: None)
  Receive Date: 20120319
  Receipt Date: 20120319
  Transmission Date: 20120608
  Serious: Yes (Other)
  Sender: FDA-Public Use
  Company Number: None

PATIENT
  Age: 34 Year
  Sex: Female
  Weight: 77.11 kg

DRUGS (2)
  1. SULFAMETHOXAZOLE [Suspect]
     Indication: PULMONARY CONGESTION
     Dosage: 1 TABLET
     Route: 048
     Dates: start: 20120315, end: 20120316
  2. SULFAMETHOXAZOLE [Suspect]
     Indication: PROPHYLAXIS
     Dosage: 1 TABLET
     Route: 048
     Dates: start: 20120315, end: 20120316

REACTIONS (6)
  - ASTHMA [None]
  - DRUG HYPERSENSITIVITY [None]
  - COUGH [None]
  - THERMAL BURN [None]
  - CONDITION AGGRAVATED [None]
  - STEVENS-JOHNSON SYNDROME [None]
